FAERS Safety Report 10830965 (Version 1)
Quarter: 2015Q1

REPORT INFORMATION
  Report Type: Report from Study
  Country: US (occurrence: US)
  Receive Date: 20150219
  Receipt Date: 20150219
  Transmission Date: 20150721
  Serious: No
  Sender: FDA-Public Use
  Company Number: US-ABBVIE-14P-163-1193999-00

PATIENT
  Age: 57 Year
  Sex: Female

DRUGS (10)
  1. FISH OIL [Concomitant]
     Active Substance: FISH OIL
     Indication: PROPHYLAXIS
  2. MVI [Concomitant]
     Active Substance: VITAMINS
     Indication: VITAMIN SUPPLEMENTATION
  3. VITAMIN D [Concomitant]
     Active Substance: CHOLECALCIFEROL
     Indication: PRODUCT USED FOR UNKNOWN INDICATION
     Dosage: QUITE SOME TIME NOW
  4. SIMBRINZA [Concomitant]
     Active Substance: BRIMONIDINE TARTRATE\BRINZOLAMIDE
     Indication: PROPHYLAXIS
  5. VOLODINAX EYE GTTS [Concomitant]
     Indication: IRITIS
     Dosage: (SP?), TO BOTH EYES
  6. CALCIUM [Concomitant]
     Active Substance: CALCIUM
     Indication: PRODUCT USED FOR UNKNOWN INDICATION
     Dosage: QUITE SOME TIME NOW
  7. AZOPT [Concomitant]
     Active Substance: BRINZOLAMIDE
     Indication: IRITIS
     Dosage: TO BOTH EYES, EYE DROPS
     Dates: end: 201401
  8. HUMIRA [Suspect]
     Active Substance: ADALIMUMAB
     Indication: PSORIATIC ARTHROPATHY
     Dates: start: 20131213
  9. FISH OIL [Concomitant]
     Active Substance: FISH OIL
     Indication: CARDIAC DISORDER
  10. SIMBRINZA [Concomitant]
     Active Substance: BRIMONIDINE TARTRATE\BRINZOLAMIDE
     Indication: IRITIS
     Dosage: EYE DROPS
     Dates: start: 201401

REACTIONS (8)
  - Nasopharyngitis [Recovering/Resolving]
  - Viral infection [Recovered/Resolved]
  - Malaise [Recovering/Resolving]
  - Respiratory tract congestion [Recovering/Resolving]
  - Cough [Recovering/Resolving]
  - Respiratory disorder [Recovered/Resolved]
  - Respiratory disorder [Recovered/Resolved]
  - Nervousness [Unknown]

NARRATIVE: CASE EVENT DATE: 201312
